FAERS Safety Report 4392707-X (Version None)
Quarter: 2004Q3

REPORT INFORMATION
  Report Type: 
  Country: None (occurrence: None)
  Receive Date: 20040702
  Receipt Date: 20040324
  Transmission Date: 20050211
  Serious: Yes (Other)
  Sender: FDA-Public Use
  Company Number: 2004UW05765

PATIENT
  Age: 73 Year
  Sex: Female
  Weight: 71.6683 kg

DRUGS (7)
  1. CRESTOR [Suspect]
     Indication: HYPERCHOLESTEROLAEMIA
     Dosage: 10 MG QD; PO
     Route: 048
  2. TOPROL-XL [Concomitant]
  3. DIOVAN [Concomitant]
  4. PROCARDIA XL [Concomitant]
  5. NEXIUM [Concomitant]
  6. ATIVAN [Concomitant]
  7. ASPIRIN [Concomitant]

REACTIONS (3)
  - DRY MOUTH [None]
  - LIP PAIN [None]
  - LIP SLOUGHING [None]
